FAERS Safety Report 9009692 (Version 2)
Quarter: 2013Q1

REPORT INFORMATION
  Report Type: Spontaneous
  Country: CA (occurrence: CA)
  Receive Date: 20130112
  Receipt Date: 20130219
  Transmission Date: 20140127
  Serious: Yes (Hospitalization, Other)
  Sender: FDA-Public Use
  Company Number: CA-AMGEN-CANSP2013000676

PATIENT
  Age: 76 Year
  Sex: Female
  Weight: 44.09 kg

DRUGS (5)
  1. PROLIA [Suspect]
     Indication: OSTEOPOROSIS
     Dosage: UNK, 6/12
     Route: 058
     Dates: start: 20120629, end: 20121101
  2. PRADAX [Suspect]
     Dosage: 110 MG, BID
     Route: 048
  3. MIRTAZAPINE [Concomitant]
     Indication: DEPRESSION
     Dosage: 50 MG, QD
     Route: 048
  4. SYNTHROID [Concomitant]
     Indication: HYPOTHYROIDISM
     Dosage: 88 MG, QD
  5. NOVOMIX [Concomitant]
     Indication: DIABETES MELLITUS
     Dosage: 30 100IU/ML, UNK

REACTIONS (2)
  - Cerebrovascular accident [Not Recovered/Not Resolved]
  - Aphagia [Unknown]
